FAERS Safety Report 21673822 (Version 2)
Quarter: 2022Q4

REPORT INFORMATION
  Report Type: Spontaneous
  Country: SI (occurrence: SI)
  Receive Date: 20221202
  Receipt Date: 20221212
  Transmission Date: 20230112
  Serious: Yes (Other)
  Sender: FDA-Public Use
  Company Number: None

PATIENT
  Age: 70 Year
  Sex: Male

DRUGS (2)
  1. FRAGMIN [Suspect]
     Active Substance: DALTEPARIN SODIUM
     Indication: Atrial fibrillation
     Dosage: 1 DF
     Route: 058
     Dates: start: 20221028, end: 20221029
  2. VOXIN COMBO [Concomitant]
     Indication: Hypertension
     Dosage: 1 DF
     Route: 048

REACTIONS (2)
  - Blood loss anaemia [Recovered/Resolved]
  - Off label use [Unknown]

NARRATIVE: CASE EVENT DATE: 20221028
